FAERS Safety Report 14481086 (Version 2)
Quarter: 2018Q1

REPORT INFORMATION
  Report Type: Report from Study
  Country: MX (occurrence: MX)
  Receive Date: 20180202
  Receipt Date: 20180209
  Transmission Date: 20180509
  Serious: Yes (Death, Hospitalization, Other)
  Sender: FDA-Public Use
  Company Number: MX-SEATTLE GENETICS-2018SGN00175

PATIENT
  Age: 19 Year
  Sex: Female
  Weight: 144 kg

DRUGS (1)
  1. BRENTUXIMAB VEDOTIN-MPI [Suspect]
     Active Substance: BRENTUXIMAB VEDOTIN
     Indication: HODGKIN^S DISEASE
     Dosage: 200 MG, UNK
     Route: 042
     Dates: start: 20180119

REACTIONS (10)
  - Influenza [Not Recovered/Not Resolved]
  - Neurological decompensation [Fatal]
  - Vomiting [Not Recovered/Not Resolved]
  - Abdominal pain [Not Recovered/Not Resolved]
  - Pyrexia [Not Recovered/Not Resolved]
  - Ketoacidosis [Fatal]
  - Cardio-respiratory arrest [Fatal]
  - Cough [Not Recovered/Not Resolved]
  - Nausea [Not Recovered/Not Resolved]
  - Electrolyte imbalance [Fatal]

NARRATIVE: CASE EVENT DATE: 20180120
